FAERS Safety Report 7207047-0 (Version None)
Quarter: 2011Q1

REPORT INFORMATION
  Report Type: 
  Country: None (occurrence: None)
  Receive Date: 20110103
  Receipt Date: 20101223
  Transmission Date: 20110831
  Serious: Yes (Hospitalization)
  Sender: FDA-Public Use
  Company Number: B0689828A

PATIENT
  Age: 48 Year
  Sex: Female

DRUGS (1)
  1. AMOXICILLIN [Suspect]
     Indication: ABSCESS
     Dosage: 1500MG PER DAY
     Route: 048
     Dates: start: 20101204, end: 20101209

REACTIONS (1)
  - ANAPHYLACTIC SHOCK [None]
